FAERS Safety Report 4379272-8 (Version None)
Quarter: 2004Q2

REPORT INFORMATION
  Report Type: 
  Country: None (occurrence: None)
  Receive Date: 20040610
  Receipt Date: 20040603
  Transmission Date: 20050107
  Serious: Yes (Other)
  Sender: FDA-Public Use
  Company Number: 206971

PATIENT
  Age: 39 Year
  Sex: Male

DRUGS (2)
  1. XOLAIR (OMALIZUMAB) PWDR + SOLVENT, INJECTION SOLN, 150 MG [Suspect]
     Indication: ASTHMA
     Dosage: 225 MG, Q2W, SUBCUTANEOUS
     Route: 058
     Dates: start: 20040603, end: 20040603
  2. ADVAIR(SALMETEROL XINAFOATE, FLUTICASONE PROPIONATE) [Concomitant]

REACTIONS (2)
  - ANAPHYLACTIC REACTION [None]
  - HYPERTENSION [None]
